FAERS Safety Report 9308035 (Version 1)
Quarter: 2013Q2

REPORT INFORMATION
  Report Type: Spontaneous
  Country: US (occurrence: US)
  Receive Date: 20130524
  Receipt Date: 20130524
  Transmission Date: 20140414
  Serious: No
  Sender: FDA-Public Use
  Company Number: US-GLAXOSMITHKLINE-A0982321A

PATIENT
  Age: 80 Year
  Sex: Female

DRUGS (4)
  1. BACTROBAN [Suspect]
     Indication: FURUNCLE
     Dosage: 30G TWICE PER DAY
     Route: 061
     Dates: start: 20120614, end: 20120616
  2. LEXAPRO [Concomitant]
  3. LIPITOR [Concomitant]
  4. ATENOLOL [Concomitant]

REACTIONS (3)
  - Rash [Not Recovered/Not Resolved]
  - Rash [Unknown]
  - Application site erythema [Unknown]
